FAERS Safety Report 4838487-2 (Version None)
Quarter: 2005Q4

REPORT INFORMATION
  Report Type: 
  Country: None (occurrence: None)
  Receive Date: 20051123
  Receipt Date: 20051123
  Transmission Date: 20060501
  Serious: Yes (Hospitalization)
  Sender: FDA-Public Use
  Company Number: None

PATIENT
  Age: 4 Year
  Sex: Male

DRUGS (1)
  1. CEFTRIAXONE [Suspect]
     Dosage: 1800MG EACH DAY

REACTIONS (13)
  - ADVERSE DRUG REACTION [None]
  - ASTHENIA [None]
  - CONFUSIONAL STATE [None]
  - FALL [None]
  - FEELING ABNORMAL [None]
  - HEADACHE [None]
  - MALAISE [None]
  - NAUSEA [None]
  - PARAESTHESIA [None]
  - PHOTOPHOBIA [None]
  - RETCHING [None]
  - SPEECH DISORDER [None]
  - VOMITING [None]
